FAERS Safety Report 4989385-5 (Version None)
Quarter: 2006Q2

REPORT INFORMATION
  Report Type: 
  Country: None (occurrence: None)
  Receive Date: 20060425
  Receipt Date: 20060413
  Transmission Date: 20061013
  Serious: Yes (Disabling, Other)
  Sender: FDA-Public Use
  Company Number: 2006051134

PATIENT
  Age: 61 Year
  Sex: Female

DRUGS (3)
  1. LIPITOR [Suspect]
     Indication: BLOOD CHOLESTEROL
     Dosage: 20 MG (20 MG, 1 IN 1 D), ORAL
     Route: 048
  2. ALL OTHER THERAPEUTIC PRODUCTS (ALL OTHER THERAPEUTIC PRODUCTS) [Concomitant]
  3. VESICARE [Concomitant]

REACTIONS (7)
  - ARTHRITIS [None]
  - CYSTITIS [None]
  - FALL [None]
  - FIBULA FRACTURE [None]
  - NEPHROLITHIASIS [None]
  - OSTEOARTHRITIS [None]
  - TIBIA FRACTURE [None]
